FAERS Safety Report 10035553 (Version 1)
Quarter: 2014Q1

REPORT INFORMATION
  Report Type: Spontaneous
  Country: US (occurrence: US)
  Receive Date: 20140325
  Receipt Date: 20140325
  Transmission Date: 20141002
  Serious: No
  Sender: FDA-Public Use
  Company Number: US-PFIZER INC-2014083577

PATIENT
  Age: 44 Year
  Sex: Female
  Weight: 53.1 kg

DRUGS (3)
  1. SERTRALINE HCL [Suspect]
     Indication: ANXIETY
     Dosage: 25 MG, DAILY
     Dates: start: 201403
  2. SERTRALINE HCL [Suspect]
     Indication: DEPRESSION
  3. KLONOPIN [Concomitant]
     Indication: ANXIETY
     Dosage: 0.25 MG, DAILY

REACTIONS (1)
  - Drug ineffective [Unknown]
